FAERS Safety Report 5066258-3 (Version None)
Quarter: 2006Q3

REPORT INFORMATION
  Report Type: 
  Country: None (occurrence: None)
  Receive Date: 20060728
  Receipt Date: 20060713
  Transmission Date: 20061208
  Serious: Yes (Hospitalization, Other)
  Sender: FDA-Public Use
  Company Number: US-LLY-US_0411107731

PATIENT
  Age: 42 Year
  Sex: Female
  Weight: 107.94 kg

DRUGS (13)
  1. PERMAX [Suspect]
     Indication: MUSCLE TWITCHING
     Dosage: SEE IMAGE
     Dates: start: 19960820
  2. PERMAX [Suspect]
     Indication: MUSCLE TWITCHING
     Dosage: SEE IMAGE
     Dates: start: 20010101
  3. WELLBUTRIN [Concomitant]
  4. LORAZEPAM [Concomitant]
  5. CLONAZEPAM [Concomitant]
  6. GABAPENTIN [Concomitant]
  7. TRAMADOL HCL [Concomitant]
  8. TEMAZEPAM [Concomitant]
  9. TRAZODONE HCL [Concomitant]
  10. VIOXX [Concomitant]
  11. ESTRADIOL INJ [Concomitant]
  12. ACETAMINOPHEN [Concomitant]
  13. HYDROCODONE BITARTRATE [Concomitant]

REACTIONS (31)
  - ABNORMAL BEHAVIOUR [None]
  - ANAEMIA [None]
  - ANXIETY [None]
  - AORTIC VALVE SCLEROSIS [None]
  - BREAST CYST [None]
  - CARDIAC HYPERTROPHY [None]
  - CARDIAC VENTRICULAR DISORDER [None]
  - DEPRESSION [None]
  - DILATATION ATRIAL [None]
  - DIZZINESS [None]
  - DRUG INEFFECTIVE [None]
  - DRUG TOLERANCE INCREASED [None]
  - ECONOMIC PROBLEM [None]
  - ENDOCARDITIS [None]
  - EXTRAPYRAMIDAL DISORDER [None]
  - FEELING GUILTY [None]
  - FOOT FRACTURE [None]
  - HAND FRACTURE [None]
  - HYSTERECTOMY [None]
  - INSOMNIA [None]
  - MARITAL PROBLEM [None]
  - MASS [None]
  - MITRAL VALVE INCOMPETENCE [None]
  - NUCLEAR MAGNETIC RESONANCE IMAGING BRAIN ABNORMAL [None]
  - PATHOLOGICAL GAMBLING [None]
  - SALPINGO-OOPHORECTOMY [None]
  - SLEEP DISORDER [None]
  - SUICIDAL IDEATION [None]
  - THEFT [None]
  - THINKING ABNORMAL [None]
  - TRICUSPID VALVE INCOMPETENCE [None]
